FAERS Safety Report 12317408 (Version 4)
Quarter: 2020Q1

REPORT INFORMATION
  Report Type: Spontaneous
  Country: US (occurrence: US)
  Receive Date: 20160429
  Receipt Date: 20200106
  Transmission Date: 20200409
  Serious: No
  Sender: FDA-Public Use
  Company Number: US-PFIZER INC-2016198352

PATIENT
  Age: 82 Year
  Sex: Female

DRUGS (3)
  1. LYRICA [Suspect]
     Active Substance: PREGABALIN
     Indication: HERPES ZOSTER
     Dosage: 150 MG, 3X/DAY
  2. LYRICA [Suspect]
     Active Substance: PREGABALIN
     Dosage: 0.5 DF, UNK (JUDGEMENT WAS 75MG)
  3. LYRICA [Suspect]
     Active Substance: PREGABALIN
     Indication: POST HERPETIC NEURALGIA
     Dosage: 150 MG, 3X/DAY
     Dates: end: 201601

REACTIONS (2)
  - Wrong technique in product usage process [Unknown]
  - Therapeutic product effect incomplete [Unknown]
